FAERS Safety Report 19286583 (Version 1)
Quarter: 2021Q2

REPORT INFORMATION
  Report Type: Spontaneous
  Country: FR (occurrence: FR)
  Receive Date: 20210521
  Receipt Date: 20210521
  Transmission Date: 20210717
  Serious: Yes (Other)
  Sender: FDA-Public Use
  Company Number: FR-JNJFOC-20210532261

PATIENT
  Age: 40 Year
  Sex: Female
  Weight: 62 kg

DRUGS (3)
  1. EPITOMAX [Suspect]
     Active Substance: TOPIRAMATE
     Indication: CLUSTER HEADACHE
     Dosage: 25 MG X 2 PAR JOUR
     Route: 048
     Dates: start: 20210128, end: 20210203
  2. EPITOMAX [Suspect]
     Active Substance: TOPIRAMATE
     Dosage: 25 MG X 2 PAR JOUR
     Route: 048
     Dates: start: 20210211
  3. EPITOMAX [Suspect]
     Active Substance: TOPIRAMATE
     Dosage: 25 MG ET 50 MG PAR JOUR.
     Route: 048
     Dates: start: 20210204, end: 20210210

REACTIONS (11)
  - Stress [Not Recovered/Not Resolved]
  - Insomnia [Not Recovered/Not Resolved]
  - Amnesia [Not Recovered/Not Resolved]
  - Depression [Not Recovered/Not Resolved]
  - Hyperacusis [Not Recovered/Not Resolved]
  - Weight decreased [Not Recovered/Not Resolved]
  - Dysgeusia [Not Recovered/Not Resolved]
  - Ageusia [Not Recovered/Not Resolved]
  - Feeling jittery [Not Recovered/Not Resolved]
  - Paraesthesia [Not Recovered/Not Resolved]
  - Decreased appetite [Not Recovered/Not Resolved]

NARRATIVE: CASE EVENT DATE: 20210128
